FAERS Safety Report 8416889 (Version 2)
Quarter: 2012Q4

REPORT INFORMATION
  Report Type: 
  Country: JP (occurrence: JP)
  Receive Date: 20120220
  Receipt Date: 20121217
  Transmission Date: 20130627
  Serious: Yes (Other)
  Sender: FDA-Public Use
  Company Number: JP-ELI_LILLY_AND_COMPANY-JP201202002787

PATIENT
  Age: 73 Year
  Sex: Male

DRUGS (4)
  1. ALIMTA [Suspect]
     Indication: LUNG ADENOCARCINOMA
     Route: 042
  2. FOLIC ACID [Concomitant]
     Route: 065
  3. VITAMIN B12 [Concomitant]
     Route: 065
  4. GLIMEPIRIDE [Concomitant]
     Indication: DIABETES MELLITUS
     Route: 048

REACTIONS (5)
  - Hypoglycaemia [Recovered/Resolved]
  - Febrile neutropenia [Unknown]
  - Decreased appetite [Recovered/Resolved]
  - Pyrexia [Unknown]
  - Neutrophil count decreased [Unknown]
